FAERS Safety Report 9027891 (Version 1)
Quarter: 2013Q1

REPORT INFORMATION
  Report Type: Spontaneous
  Country: US (occurrence: None)
  Receive Date: 20130115
  Receipt Date: 20130115
  Transmission Date: 20140127
  Serious: Yes (Other)
  Sender: FDA-Public Use
  Company Number: None

PATIENT
  Age: 64 Year
  Sex: Male
  Weight: 125.65 kg

DRUGS (4)
  1. HCTZ/LISINOPRIL [Suspect]
     Route: 048
     Dates: end: 2010
  2. ATENOLOL [Suspect]
     Route: 048
     Dates: start: 2010, end: 2012
  3. CONTACT PASTE FOR EKG? [Concomitant]
  4. DILTAZEM [Concomitant]

REACTIONS (4)
  - Alopecia [None]
  - Madarosis [None]
  - Madarosis [None]
  - Cataract [None]
